FAERS Safety Report 13861968 (Version 1)
Quarter: 2017Q3

REPORT INFORMATION
  Report Type: Spontaneous
  Country: US (occurrence: US)
  Receive Date: 20170811
  Receipt Date: 20170811
  Transmission Date: 20171127
  Serious: No
  Sender: FDA-Public Use
  Company Number: US-BIOGEN-2017BI00443996

PATIENT
  Sex: Female

DRUGS (1)
  1. AVONEX [Suspect]
     Active Substance: INTERFERON BETA-1A
     Indication: MULTIPLE SCLEROSIS
     Route: 065

REACTIONS (7)
  - Insomnia [Unknown]
  - Multiple sclerosis [Unknown]
  - Pyrexia [Unknown]
  - Hypophagia [Unknown]
  - Nausea [Unknown]
  - Drug ineffective [Unknown]
  - Hypersensitivity [Unknown]
